FAERS Safety Report 7531183-2 (Version None)
Quarter: 2011Q2

REPORT INFORMATION
  Report Type: 
  Country: None (occurrence: None)
  Receive Date: 20110527
  Receipt Date: 20110524
  Transmission Date: 20111010
  Serious: Yes (Death, Hospitalization)
  Sender: FDA-Public Use
  Company Number: 2010SP063042

PATIENT
  Age: 30 Year
  Sex: Male
  Weight: 62 kg

DRUGS (27)
  1. TEMODAL [Suspect]
     Indication: GLIOBLASTOMA MULTIFORME
     Dosage: SEE IMAGE
     Route: 048
     Dates: start: 20071220, end: 20071224
  2. TEMODAL [Suspect]
     Indication: GLIOBLASTOMA MULTIFORME
     Dosage: SEE IMAGE
     Route: 048
     Dates: start: 20080502, end: 20080506
  3. TEMODAL [Suspect]
     Indication: GLIOBLASTOMA MULTIFORME
     Dosage: SEE IMAGE
     Route: 048
     Dates: start: 20071029, end: 20071102
  4. TEMODAL [Suspect]
     Indication: GLIOBLASTOMA MULTIFORME
     Dosage: SEE IMAGE
     Route: 048
     Dates: start: 20070501, end: 20070605
  5. TEMODAL [Suspect]
     Indication: GLIOBLASTOMA MULTIFORME
     Dosage: SEE IMAGE
     Route: 048
     Dates: start: 20080321, end: 20080325
  6. TEMODAL [Suspect]
     Indication: GLIOBLASTOMA MULTIFORME
     Dosage: SEE IMAGE
     Route: 048
     Dates: start: 20070308, end: 20070313
  7. TEMODAL [Suspect]
     Indication: GLIOBLASTOMA MULTIFORME
     Dosage: SEE IMAGE
     Route: 048
     Dates: start: 20070324, end: 20070503
  8. TEMODAL [Suspect]
     Indication: GLIOBLASTOMA MULTIFORME
     Dosage: SEE IMAGE
     Route: 048
     Dates: start: 20070629, end: 20070703
  9. TEMODAL [Suspect]
     Indication: GLIOBLASTOMA MULTIFORME
     Dosage: SEE IMAGE
     Route: 048
     Dates: start: 20070827, end: 20070831
  10. TEMODAL [Suspect]
     Indication: GLIOBLASTOMA MULTIFORME
     Dosage: SEE IMAGE
     Route: 048
     Dates: start: 20080124, end: 20080128
  11. TEMODAL [Suspect]
     Indication: GLIOBLASTOMA MULTIFORME
     Dosage: SEE IMAGE
     Route: 048
     Dates: start: 20080221, end: 20080225
  12. TEMODAL [Suspect]
     Indication: GLIOBLASTOMA MULTIFORME
     Dosage: SEE IMAGE
     Route: 048
     Dates: start: 20070927, end: 20071001
  13. TEMODAL [Suspect]
     Indication: GLIOBLASTOMA MULTIFORME
     Dosage: SEE IMAGE
     Route: 048
     Dates: start: 20080530, end: 20080603
  14. TEMODAL [Suspect]
     Indication: GLIOBLASTOMA MULTIFORME
     Dosage: SEE IMAGE
     Route: 048
     Dates: start: 20070727, end: 20070731
  15. TEMODAL [Suspect]
     Indication: GLIOBLASTOMA MULTIFORME
     Dosage: SEE IMAGE
     Route: 048
     Dates: start: 20080701, end: 20080705
  16. PHENOBARBITAL TAB [Concomitant]
  17. AMINOFLUID (MIXED AMINO ACID/CARBOHYDRATE/ELECTROLYTE COMBINED DRUG) [Concomitant]
  18. ELEMENMIC [Concomitant]
  19. RAMELTEON [Concomitant]
  20. TOPINA (TOPIRAMATE) [Concomitant]
  21. GLYCEOL (CONCENTRATE GLYCERIN/FRUCTOSE) [Concomitant]
  22. LOKIFLAN (LOXOPROFEN SODIUM HYDRATE) [Concomitant]
  23. MYSTAN [Concomitant]
  24. ORGADRON /00016002/ [Concomitant]
  25. FULCALIQ 2 (MIXED AMINO ACID/CARBOHYDRATE/ELECTROLYTE/VITAMIN COMBINED [Concomitant]
  26. COTRIM [Concomitant]
  27. FULCALIQ 1 (MIXED AMINO ACID/CARBOHYDRATE/ELECTROLYTE/VITAMIN COMBINED [Concomitant]

REACTIONS (4)
  - GLIOBLASTOMA MULTIFORME [None]
  - SURGERY [None]
  - VOMITING [None]
  - NEOPLASM PROGRESSION [None]
